FAERS Safety Report 5201915-7 (Version None)
Quarter: 2006Q4

REPORT INFORMATION
  Report Type: 
  Country: None (occurrence: None)
  Receive Date: 20061010
  Receipt Date: 20060321
  Transmission Date: 20070319
  Serious: Yes (Hospitalization)
  Sender: FDA-Public Use
  Company Number: 2006-03-1614

PATIENT
  Age: 23 Year
  Sex: Female

DRUGS (4)
  1. TEMODAR [Suspect]
     Indication: GLIOBLASTOMA MULTIFORME
     Dosage: 350-250MG QD* ORAL - SEE IMAGE
     Route: 048
  2. TEMODAR [Suspect]
     Indication: GLIOBLASTOMA MULTIFORME
     Dosage: 350-250MG QD* ORAL - SEE IMAGE
     Route: 048
  3. TEMODAR [Suspect]
     Indication: GLIOBLASTOMA MULTIFORME
     Dosage: 350-250MG QD* ORAL - SEE IMAGE
     Route: 048
  4. RADIATION THERAPY [Concomitant]

REACTIONS (2)
  - NAUSEA [None]
  - VOMITING [None]
